FAERS Safety Report 8101765-8 (Version None)
Quarter: 2012Q1

REPORT INFORMATION
  Report Type: 
  Country: None (occurrence: None)
  Receive Date: 20120131
  Receipt Date: 20120123
  Transmission Date: 20120608
  Serious: Yes (Hospitalization)
  Sender: FDA-Public Use
  Company Number: PHHY2012JP006956

PATIENT
  Age: 63 Year
  Sex: Female

DRUGS (1)
  1. LETROZOLE [Suspect]
     Dosage: UNK

REACTIONS (1)
  - ORGANISING PNEUMONIA [None]
